FAERS Safety Report 10414986 (Version 1)
Quarter: 2014Q3

REPORT INFORMATION
  Report Type: Other
  Country: NO (occurrence: NO)
  Receive Date: 20140828
  Receipt Date: 20140828
  Transmission Date: 20150326
  Serious: Yes (Hospitalization)
  Sender: FDA-Public Use
  Company Number: NO-SUN PHARMACEUTICAL INDUSTRIES LTD-2014SUN01975

PATIENT

DRUGS (5)
  1. EPIRUBICIN [Concomitant]
     Active Substance: EPIRUBICIN
     Indication: OESOPHAGEAL CARCINOMA RECURRENT
     Dosage: 105 MG, UNK
     Route: 042
     Dates: start: 20140530
  2. EPIRUBICIN [Concomitant]
     Active Substance: EPIRUBICIN
     Dosage: 105 MG, UNK
     Route: 042
     Dates: start: 20140620, end: 20140620
  3. OXALIPLATIN. [Suspect]
     Active Substance: OXALIPLATIN
     Indication: OESOPHAGEAL CARCINOMA RECURRENT
     Dosage: 225 MG, UNK
     Route: 042
     Dates: start: 20140530
  4. OXALIPLATIN. [Suspect]
     Active Substance: OXALIPLATIN
     Dosage: 225 MG, UNK
     Route: 042
     Dates: start: 20140620, end: 20140620
  5. XELODA [Concomitant]
     Active Substance: CAPECITABINE
     Indication: OESOPHAGEAL CARCINOMA RECURRENT
     Dosage: 1300 MG, BID
     Route: 048
     Dates: start: 20140530, end: 20140620

REACTIONS (6)
  - Neurotoxicity [Recovered/Resolved]
  - Throat tightness [Recovered/Resolved]
  - Muscular weakness [Recovered/Resolved]
  - Asthenia [Recovered/Resolved]
  - Dysarthria [Recovered/Resolved]
  - Paraesthesia [Recovered/Resolved]

NARRATIVE: CASE EVENT DATE: 20140530
